FAERS Safety Report 8331253-5 (Version None)
Quarter: 2012Q2

REPORT INFORMATION
  Report Type: 
  Country: None (occurrence: None)
  Receive Date: 20120502
  Receipt Date: 20120413
  Transmission Date: 20120825
  Serious: No
  Sender: FDA-Public Use
  Company Number: US-AMGEN-USASP2012023704

PATIENT
  Age: 56 Year
  Sex: Female

DRUGS (1)
  1. ENBREL [Suspect]
     Indication: RHEUMATOID ARTHRITIS
     Dosage: 50 MG, QWK
     Dates: start: 20120305

REACTIONS (9)
  - HYPOTHYROIDISM [None]
  - CONFUSIONAL STATE [None]
  - DIZZINESS [None]
  - OEDEMA PERIPHERAL [None]
  - BALANCE DISORDER [None]
  - MUSCLE SPASMS [None]
  - PERFORMANCE STATUS DECREASED [None]
  - MEMORY IMPAIRMENT [None]
  - DISTURBANCE IN ATTENTION [None]
